FAERS Safety Report 19094354 (Version 2)
Quarter: 2021Q2

REPORT INFORMATION
  Report Type: Spontaneous
  Country: NL (occurrence: NL)
  Receive Date: 20210406
  Receipt Date: 20210525
  Transmission Date: 20210717
  Serious: Yes (Other)
  Sender: FDA-Public Use
  Company Number: NL-SUN PHARMACEUTICAL INDUSTRIES LTD-2021RR-289886

PATIENT
  Age: 72 Year
  Sex: Male
  Weight: 94 kg

DRUGS (12)
  1. DEXAMETHASON/TOBRAMYCINE OOGDR 1/3MG/ML / TOBRADEX OOGDRUPPELS FLAC... [Concomitant]
     Dosage: UNK, TID
     Route: 065
  2. EYE DROPSEYE DROPS [Concomitant]
     Dosage: 2 DROPS, BID
     Route: 065
     Dates: start: 20201222
  3. TAMSULOSINE HCL SUN 0,4 MG, CAPSULES MET VERLENGDE AFGIFTE [Suspect]
     Active Substance: TAMSULOSIN
     Indication: PRODUCT USED FOR UNKNOWN INDICATION
     Dosage: 1 DOSAGE FORM, DAILY
     Route: 065
     Dates: start: 20200216, end: 20201109
  4. DEXAMETHASON/TOBRAMYCINE OOGDR 1/3MG/ML / TOBRADEX OOGDRUPPELS FLAC... [Concomitant]
     Indication: PRODUCT USED FOR UNKNOWN INDICATION
     Dosage: UNK
     Route: 065
     Dates: start: 20201222
  5. NEPAFENAC OOGDRUPPELS 1MG/ML / NEVANAC OOGDRUPPELS 1MG/ML FLACON 5M... [Concomitant]
     Indication: PRODUCT USED FOR UNKNOWN INDICATION
     Dosage: UNK, DAILY
     Route: 065
  6. OFLOXACINE OOGDRUPPELS 3MG/ML / TRAFLOXAL EDO OOGDRUPPELS 3MG/ML TU... [Concomitant]
     Indication: PRODUCT USED FOR UNKNOWN INDICATION
     Dosage: 1 DROP, BID, 2DD
     Route: 065
     Dates: start: 20210125, end: 20210222
  7. BIMATOPROST OOGDRUPPELS 0,1MG/ML / LUMIGAN OOGDRUPPELS 0,1MG/ML FLA [Concomitant]
     Indication: PRODUCT USED FOR UNKNOWN INDICATION
     Dosage: UNK, DAILY, UNTIL 22?DEC?2020
     Route: 065
  8. EYE DROPSEYE DROPS [Concomitant]
     Dosage: 5 DROPS, 1 DOSE/6 HOURS, ODM 5 4?5 DD
     Route: 065
     Dates: start: 20210125
  9. NON SPECIFIED DRUG [Concomitant]
     Active Substance: UNSPECIFIED INGREDIENT
     Indication: PRODUCT USED FOR UNKNOWN INDICATION
     Dosage: ()
     Route: 065
  10. NEPAFENAC OOGDRUPPELS 1MG/ML / NEVANAC OOGDRUPPELS 1MG/ML FLACON 5M... [Concomitant]
     Dosage: UNK, DAILY, UNTIL 12?JAN?2021
     Route: 065
  11. EYE DROPSEYE DROPS [Concomitant]
     Indication: PRODUCT USED FOR UNKNOWN INDICATION
     Dosage: 3 DROPS, TID
     Route: 065
  12. EYE DROPSEYE DROPS [Concomitant]
     Dosage: 5 DROPS, 1 DOSE/5HOURS
     Route: 065
     Dates: start: 20210222

REACTIONS (7)
  - Posterior capsule opacification [Not Recovered/Not Resolved]
  - Nausea [Unknown]
  - Visual impairment [Not Recovered/Not Resolved]
  - Floppy iris syndrome [Not Recovered/Not Resolved]
  - Device dislocation [Not Recovered/Not Resolved]
  - Muscle injury [Not Recovered/Not Resolved]
  - Vomiting [Unknown]

NARRATIVE: CASE EVENT DATE: 202011
